FAERS Safety Report 13655398 (Version 4)
Quarter: 2018Q2

REPORT INFORMATION
  Report Type: Report from Study
  Country: US (occurrence: US)
  Receive Date: 20170615
  Receipt Date: 20180424
  Transmission Date: 20180711
  Serious: Yes (Hospitalization, Other)
  Sender: FDA-Public Use
  Company Number: US-ROCHE-1732173

PATIENT
  Age: 63 Year
  Sex: Female
  Weight: 82.63 kg

DRUGS (8)
  1. ACTEMRA [Suspect]
     Active Substance: TOCILIZUMAB
     Route: 058
  2. ACTEMRA [Suspect]
     Active Substance: TOCILIZUMAB
     Route: 058
     Dates: end: 2017
  3. ACTEMRA [Suspect]
     Active Substance: TOCILIZUMAB
     Route: 058
  4. ACTEMRA [Suspect]
     Active Substance: TOCILIZUMAB
     Indication: RHEUMATOID ARTHRITIS
     Dosage: INFUSION ONCE A MONTH
     Route: 058
     Dates: end: 201506
  5. ACTEMRA [Suspect]
     Active Substance: TOCILIZUMAB
     Route: 058
     Dates: start: 2015
  6. CORTIZONE 10 [Concomitant]
     Active Substance: HYDROCORTISONE
  7. ACTEMRA [Suspect]
     Active Substance: TOCILIZUMAB
     Route: 058
     Dates: end: 2018
  8. LEFLUNOMIDE. [Suspect]
     Active Substance: LEFLUNOMIDE
     Indication: PRODUCT USED FOR UNKNOWN INDICATION
     Route: 065

REACTIONS (23)
  - Asthenia [Unknown]
  - Pain in extremity [Recovered/Resolved]
  - Drug ineffective [Unknown]
  - Malaise [Unknown]
  - Joint swelling [Unknown]
  - Back pain [Recovering/Resolving]
  - Rheumatoid arthritis [Unknown]
  - Impaired healing [Recovered/Resolved]
  - Lower limb fracture [Unknown]
  - Arthritis infective [Unknown]
  - Arthralgia [Recovered/Resolved]
  - Fracture [Not Recovered/Not Resolved]
  - Post procedural infection [Recovered/Resolved]
  - Groin pain [Recovered/Resolved]
  - Joint dislocation [Not Recovered/Not Resolved]
  - Balance disorder [Unknown]
  - Hip surgery [Unknown]
  - Localised infection [Unknown]
  - Fall [Unknown]
  - Insomnia [Unknown]
  - Dizziness [Unknown]
  - Pain [Recovered/Resolved]
  - Arthralgia [Unknown]

NARRATIVE: CASE EVENT DATE: 201506
